FAERS Safety Report 22051752 (Version 1)
Quarter: 2023Q1

REPORT INFORMATION
  Report Type: Other
  Country: CN (occurrence: None)
  Receive Date: 20230302
  Receipt Date: 20230302
  Transmission Date: 20230418
  Serious: Yes (Other)
  Sender: FDA-Public Use
  Company Number: CN-Saptalis Pharmaceuticals,LLC-000345

PATIENT
  Age: 27 Year
  Sex: Male

DRUGS (2)
  1. TRIAMCINOLONE ACETONIDE [Suspect]
     Active Substance: TRIAMCINOLONE ACETONIDE
     Indication: Product used for unknown indication
     Dosage: 0.1ML TRIAMCINOLONE ACETONIDE (40MG/ML)
  2. LIDOCAINE [Concomitant]
     Active Substance: LIDOCAINE
     Indication: Anaesthesia eye
     Dosage: 2% LIDOCAINE

REACTIONS (2)
  - Retinal oedema [Recovered/Resolved]
  - Type I hypersensitivity [Recovered/Resolved]
